FAERS Safety Report 9851940 (Version 1)
Quarter: 2014Q1

REPORT INFORMATION
  Report Type: Spontaneous
  Country: US (occurrence: US)
  Receive Date: 20140129
  Receipt Date: 20140129
  Transmission Date: 20141002
  Serious: Yes (Other)
  Sender: FDA-Public Use
  Company Number: US-BAYER-2014-014734

PATIENT
  Age: 16 Year
  Sex: Female
  Weight: 112.93 kg

DRUGS (9)
  1. GIANVI [Suspect]
  2. ACETAMINOPHEN W/ASPIRIN/CAFFEINE [Concomitant]
     Dosage: 250/250/65 MG
     Route: 048
  3. ESZOPICLONE [Concomitant]
     Dosage: 2 MG, HS
     Route: 048
  4. VIIBRYD [Concomitant]
     Indication: DEPRESSION
     Route: 048
  5. ZOVIA [Concomitant]
  6. TORADOL [Concomitant]
  7. LUNESTA [Concomitant]
  8. VICOPROFEN [Concomitant]
  9. PROMETHAZINE [Concomitant]

REACTIONS (3)
  - Cholecystectomy [None]
  - Cholecystitis chronic [None]
  - Biliary dyskinesia [None]
